FAERS Safety Report 4385356-0 (Version None)
Quarter: 2004Q2

REPORT INFORMATION
  Report Type: 
  Country: None (occurrence: None)
  Receive Date: 20040622
  Receipt Date: 20040607
  Transmission Date: 20050107
  Serious: Yes (Other)
  Sender: FDA-Public Use
  Company Number: 197623

PATIENT
  Age: 51 Year
  Sex: 0

DRUGS (2)
  1. AVONEX [Suspect]
     Indication: MULTIPLE SCLEROSIS
     Dosage: 30 MCG QW IM
     Route: 030
     Dates: start: 20030221, end: 20031101
  2. AVONEX [Suspect]
     Indication: MULTIPLE SCLEROSIS
     Dosage: 30 MCG QW IM
     Route: 030
     Dates: start: 20031120

REACTIONS (6)
  - DISTURBANCE IN ATTENTION [None]
  - HYPERAESTHESIA [None]
  - NAUSEA [None]
  - PAIN [None]
  - PYREXIA [None]
  - VOMITING [None]
